FAERS Safety Report 9819526 (Version 2)
Quarter: 2014Q1

REPORT INFORMATION
  Report Type: Spontaneous
  Country: US (occurrence: US)
  Receive Date: 20140115
  Receipt Date: 20140124
  Transmission Date: 20141002
  Serious: Yes (Other)
  Sender: FDA-Public Use
  Company Number: US-JHP PHARMACEUTICALS, LLC-JHP201300819

PATIENT
  Age: 28 Year
  Sex: Female

DRUGS (3)
  1. PITOCIN [Suspect]
     Indication: LABOUR INDUCTION
     Dosage: 20 IU, IN 1000ML LR AT 3-9 ML/HR
     Route: 042
     Dates: start: 20131204, end: 20131204
  2. PRENATAL VITAMINS [Concomitant]
  3. BUPIVACAINE W/FENTANYL [Concomitant]
     Indication: EPIDURAL ANAESTHESIA
     Route: 008

REACTIONS (7)
  - Drug ineffective [Recovered/Resolved]
  - Uterine atony [Recovered/Resolved]
  - Retained placenta or membranes [Recovered/Resolved]
  - Postpartum haemorrhage [Recovered/Resolved]
  - Anaemia [Recovered/Resolved]
  - Thrombocytopenia [Recovered/Resolved]
  - Maternal exposure during delivery [Recovered/Resolved]
